FAERS Safety Report 4667013-6 (Version None)
Quarter: 2005Q2

REPORT INFORMATION
  Report Type: 
  Country: None (occurrence: None)
  Receive Date: 20050520
  Receipt Date: 20040409
  Transmission Date: 20051028
  Serious: Yes (Other)
  Sender: FDA-Public Use
  Company Number: PHEH2004US04074

PATIENT
  Age: 60 Year
  Sex: Female

DRUGS (20)
  1. AREDIA [Suspect]
     Dosage: 90 MG OVER 1-2 HOURS
     Dates: start: 20010122, end: 20021009
  2. ZOMETA [Suspect]
     Dosage: 3-4MG OVER 15 MINUTES
     Dates: start: 20021106, end: 20030715
  3. CAPECITABINE [Concomitant]
     Dosage: 500MG X 12 TREATMENTS
     Dates: start: 20010130, end: 20011016
  4. CYCLOPHOSPHAMIDE [Concomitant]
     Dosage: 918 MG OVER 15 MINUTES
     Dates: start: 20021206, end: 20030312
  5. EPOETIN ALFA [Concomitant]
     Dosage: 40,000 UNITS X 25 TREATMENTS
     Dates: start: 20010718, end: 20030624
  6. EXEMESTANE [Concomitant]
     Dosage: 25 MG X 2 TREATMENTS
     Dates: start: 20010918, end: 20011004
  7. FLUOROURACIL [Concomitant]
     Dosage: 918 MG X 4 TREATMENTS
     Dates: start: 20021206, end: 20030312
  8. FULVESTRANT [Concomitant]
     Dosage: 250MG X 11 TREATMENTS
     Dates: start: 20020614, end: 20030319
  9. METHOTREXATE SODIUM [Concomitant]
     Dosage: 61MG X 4 TREATMENTS
     Dates: start: 20021206, end: 20030312
  10. TAXOL [Concomitant]
     Dosage: 122-123 MG OVER 1 HOUR
     Dates: start: 20030417, end: 20030902
  11. VINORELBINE TARTRATE [Concomitant]
     Dosage: 31-46 MG X 38 TREATMENTS
     Dates: start: 20011128, end: 20021113
  12. DEXAMETHASONE SODIUM PHOSPHATE [Concomitant]
     Dosage: 2-10MG OVER 15 MINUTES
     Dates: start: 20030506, end: 20030715
  13. DIPHENHYDRAMINE HCL [Concomitant]
     Dosage: 12.5-25 MG OVER 5 MINUTES
     Dates: start: 20030506, end: 20030902
  14. FILGRASTIM [Concomitant]
     Dosage: 300 MCG X 11 TREATMENTS
     Dates: start: 20011220, end: 20021212
  15. GRANISETRON  HCL [Concomitant]
     Dosage: 4 MG X 4 TREATMENTS
     Dates: start: 20021206, end: 20030312
  16. ONDANSETRON [Concomitant]
     Dosage: 8 MG X 2 TREATMENTS
     Dates: start: 20011128, end: 20021206
  17. PEGFILGRASTIM [Concomitant]
     Dosage: 6MG OVER 3 TREATMENTS
     Dates: start: 20030129, end: 20030312
  18. PROCHLORPERAZINE MALEATE [Concomitant]
     Dosage: 10 MG, ONCE/SINGLE
     Dates: start: 20030129, end: 20030129
  19. RANITIDINE HYDROCHLORIDE [Concomitant]
     Dosage: 50MG OVER 20 MINUTES
     Dates: start: 20020807, end: 20030902
  20. DEXAMETHASONE [Concomitant]
     Dosage: 20 MG X 5 TREATMENTS
     Dates: start: 20021206, end: 20030312

REACTIONS (3)
  - JAW DISORDER [None]
  - OSTEONECROSIS [None]
  - TOOTH EXTRACTION [None]
